FAERS Safety Report 7430426-3 (Version None)
Quarter: 2011Q2

REPORT INFORMATION
  Report Type: 
  Country: None (occurrence: None)
  Receive Date: 20110421
  Receipt Date: 20110418
  Transmission Date: 20111010
  Serious: Yes (Other)
  Sender: FDA-Public Use
  Company Number: CHPA2011US05634

PATIENT
  Sex: Female
  Weight: 86.168 kg

DRUGS (2)
  1. VOLTAREN [Suspect]
     Indication: NERVE INJURY
     Dosage: 4 G, QID
     Route: 061
     Dates: start: 20091225, end: 20100116
  2. VOLTAREN [Suspect]
     Indication: ARTHRITIS

REACTIONS (11)
  - STAPHYLOCOCCAL INFECTION [None]
  - CELLULITIS [None]
  - BEDRIDDEN [None]
  - OFF LABEL USE [None]
  - OEDEMA PERIPHERAL [None]
  - WOUND TREATMENT [None]
  - WOUND DRAINAGE [None]
  - WALKING AID USER [None]
  - WHEELCHAIR USER [None]
  - BLISTER [None]
  - DEBRIDEMENT [None]
